FAERS Safety Report 5815036-3 (Version None)
Quarter: 2008Q3

REPORT INFORMATION
  Report Type: 
  Country: None (occurrence: None)
  Receive Date: 20080718
  Receipt Date: 20080710
  Transmission Date: 20090109
  Serious: Yes (Other)
  Sender: FDA-Public Use
  Company Number: B0528857A

PATIENT
  Age: 10 Year
  Sex: Male
  Weight: 30 kg

DRUGS (2)
  1. ZOVIRAX [Suspect]
     Indication: PROPHYLAXIS
     Dosage: 400MG TWICE PER DAY
     Route: 048
     Dates: start: 20080301
  2. CYCLOSPORINE [Concomitant]
     Indication: BONE MARROW TRANSPLANT
     Dates: end: 20080627

REACTIONS (5)
  - BLOOD BILIRUBIN INCREASED [None]
  - CHROMATURIA [None]
  - GAMMA-GLUTAMYLTRANSFERASE INCREASED [None]
  - PRURITUS [None]
  - TRANSAMINASES INCREASED [None]
